FAERS Safety Report 16320455 (Version 1)
Quarter: 2019Q2

REPORT INFORMATION
  Report Type: Spontaneous
  Country: US (occurrence: US)
  Receive Date: 20190516
  Receipt Date: 20190516
  Transmission Date: 20190711
  Serious: Yes (Hospitalization)
  Sender: FDA-Public Use
  Company Number: US-PFIZER INC-2019208014

PATIENT
  Age: 68 Year
  Sex: Male

DRUGS (4)
  1. VFEND [Suspect]
     Active Substance: VORICONAZOLE
     Indication: ASPERGILLUS INFECTION
     Dosage: 300 MG, 2X/DAY (ON EMPTY STOMACH)
     Route: 048
  2. VFEND [Suspect]
     Active Substance: VORICONAZOLE
     Indication: ASPERGILLUS INFECTION
     Dosage: 1 DF, 2X/DAY (ON EMPTY STOMACH)
     Route: 048
  3. VFEND [Suspect]
     Active Substance: VORICONAZOLE
     Indication: COCCIDIOIDOMYCOSIS
  4. VFEND [Suspect]
     Active Substance: VORICONAZOLE
     Indication: COCCIDIOIDOMYCOSIS

REACTIONS (7)
  - Product use issue [Unknown]
  - Pyrexia [Recovered/Resolved]
  - Lung infiltration [Unknown]
  - Off label use [Unknown]
  - Dyspnoea [Unknown]
  - Bronchitis [Unknown]
  - Hyperhidrosis [Not Recovered/Not Resolved]
